FAERS Safety Report 8451724 (Version 2)
Quarter: 2012Q4

REPORT INFORMATION
  Report Type: 
  Country: US (occurrence: US)
  Receive Date: 20120309
  Receipt Date: 20121217
  Transmission Date: 20130627
  Serious: No
  Sender: FDA-Public Use
  Company Number: US-TEVA-326913USA

PATIENT
  Age: 42 Year
  Sex: Female
  Weight: 49.94 kg

DRUGS (1)
  1. PLAN B ONE-STEP [Suspect]
     Indication: POST COITAL CONTRACEPTION
     Dosage: 1.5 Milligram Daily;
     Route: 048
     Dates: start: 20120210, end: 20120210

REACTIONS (3)
  - Drug ineffective [Recovered/Resolved]
  - Vaginal haemorrhage [Unknown]
  - Pregnancy after post coital contraception [Recovered/Resolved]
